FAERS Safety Report 4505546-3 (Version None)
Quarter: 2004Q4

REPORT INFORMATION
  Report Type: 
  Country: None (occurrence: None)
  Receive Date: 20041025
  Receipt Date: 20031021
  Transmission Date: 20050328
  Serious: Yes (Other)
  Sender: FDA-Public Use
  Company Number: US-JNJFOC-20031004714

PATIENT
  Age: 63 Year
  Sex: Female
  Weight: 47.6277 kg

DRUGS (3)
  1. REMICADE [Suspect]
     Indication: CROHN'S DISEASE
     Dosage: 1 I N 1 DAY, INTRAVENOUS
     Route: 042
     Dates: start: 20031015
  2. IMURAN [Concomitant]
  3. PREDNISONE [Concomitant]

REACTIONS (5)
  - FEELING HOT [None]
  - FLUSHING [None]
  - INFUSION RELATED REACTION [None]
  - OROPHARYNGEAL SWELLING [None]
  - TREMOR [None]
